FAERS Safety Report 4947057-7 (Version None)
Quarter: 2006Q1

REPORT INFORMATION
  Report Type: 
  Country: None (occurrence: None)
  Receive Date: 20060317
  Receipt Date: 20060303
  Transmission Date: 20060701
  Serious: Yes (Disabling)
  Sender: FDA-Public Use
  Company Number: GBWYE447403MAR06

PATIENT
  Sex: Female

DRUGS (6)
  1. ENBREL [Suspect]
     Indication: DRUG USE FOR UNKNOWN INDICATION
     Dosage: 50MG FREQUENCY UNKNOWN
     Route: 058
     Dates: start: 20060107
  2. ACTONEL [Concomitant]
  3. PREDNISOLONE [Concomitant]
  4. TETRACYCLINE [Concomitant]
     Dates: start: 20060101, end: 20060101
  5. LOPERAMIDE [Concomitant]
     Dosage: 4MG AS NEEDED
     Dates: start: 20060101
  6. LANSOPRAZOLE [Concomitant]
     Dates: start: 20060101, end: 20060101

REACTIONS (2)
  - ABDOMINAL PAIN [None]
  - DIARRHOEA [None]
